FAERS Safety Report 14355753 (Version 6)
Quarter: 2023Q2

REPORT INFORMATION
  Report Type: Report from Study
  Country: CA (occurrence: CA)
  Receive Date: 20180105
  Receipt Date: 20230428
  Transmission Date: 20230722
  Serious: Yes (Hospitalization)
  Sender: FDA-Public Use
  Company Number: CA-TEVA-2017-CA-842147

PATIENT
  Age: 52 Year
  Sex: Male

DRUGS (5)
  1. COPAXONE [Suspect]
     Active Substance: GLATIRAMER ACETATE
     Indication: Multiple sclerosis
     Dosage: 20 MILLIGRAM DAILY;
     Route: 058
     Dates: start: 20040812
  2. COPAXONE [Suspect]
     Active Substance: GLATIRAMER ACETATE
     Indication: Relapsing-remitting multiple sclerosis
  3. OLMESARTAN MEDOXOMIL [Concomitant]
     Active Substance: OLMESARTAN MEDOXOMIL
     Indication: Product used for unknown indication
  4. VITAMIN D [Concomitant]
     Active Substance: VITAMIN D NOS
     Indication: Product used for unknown indication
  5. Omega 3 Complex [Concomitant]
     Indication: Product used for unknown indication

REACTIONS (19)
  - Adverse reaction [Unknown]
  - Injection site pain [Recovered/Resolved with Sequelae]
  - Injection site bruising [Not Recovered/Not Resolved]
  - Dysstasia [Recovering/Resolving]
  - Gait disturbance [Recovering/Resolving]
  - Pain in extremity [Recovering/Resolving]
  - Swelling [Recovering/Resolving]
  - Hypoaesthesia [Not Recovered/Not Resolved]
  - Contusion [Not Recovered/Not Resolved]
  - Atrophy [Unknown]
  - Injection site pruritus [Unknown]
  - Injection site hypoaesthesia [Unknown]
  - Injection site swelling [Unknown]
  - Pain [Unknown]
  - Injection site ulcer [Not Recovered/Not Resolved]
  - Injection site injury [Not Recovered/Not Resolved]
  - Injection site nerve damage [Not Recovered/Not Resolved]
  - Injection site scar [Not Recovered/Not Resolved]
  - Product closure issue [Unknown]

NARRATIVE: CASE EVENT DATE: 20171201
